FAERS Safety Report 5415941-6 (Version None)
Quarter: 2007Q3

REPORT INFORMATION
  Report Type: 
  Country: None (occurrence: None)
  Receive Date: 20070815
  Receipt Date: 20070802
  Transmission Date: 20080115
  Serious: Yes (Hospitalization, Other)
  Sender: FDA-Public Use
  Company Number: US-SHR-US-2007-020643

PATIENT
  Age: 62 Year
  Sex: Female
  Weight: 53.968 kg

DRUGS (10)
  1. BETASERON [Suspect]
     Indication: RELAPSING-REMITTING MULTIPLE SCLEROSIS
     Dosage: 8 MIU, EVERY 2D
     Route: 058
     Dates: start: 19990101, end: 20070413
  2. BETASERON [Suspect]
     Dosage: 8 MIU, EVERY 2D
     Route: 058
     Dates: start: 20070508
  3. LITHIUM CARBONATE [Suspect]
     Indication: BIPOLAR DISORDER
     Dosage: UNK, 1X/DAY
     Dates: end: 20070427
  4. LITHIUM CARBONATE [Suspect]
     Dosage: 150 MG, 2X/DAY
     Route: 048
  5. XANAX [Concomitant]
     Indication: ANXIETY
     Dosage: .5 MG, 3X/DAY
     Route: 048
     Dates: start: 19870101
  6. PROTONIX [Concomitant]
     Dosage: 40 MG, 2X/DAY
     Dates: start: 19800101
  7. FIORINAL W/CODEINE [Concomitant]
     Indication: PAIN
     Dosage: 4 UNK, AS REQ'D
     Route: 048
     Dates: start: 19780101
  8. AMBIEN [Concomitant]
     Indication: INSOMNIA
     Dosage: 10 MG, AS REQ'D
  9. PROZAC [Concomitant]
     Indication: DEPRESSION
     Dosage: 20 MG/D, UNK
     Route: 048
  10. MARIJUANA [Suspect]

REACTIONS (16)
  - ASTHENIA [None]
  - BLOOD PRESSURE DECREASED [None]
  - DEHYDRATION [None]
  - DEPRESSED LEVEL OF CONSCIOUSNESS [None]
  - DRUG INTERACTION [None]
  - EYE PAIN [None]
  - LOSS OF CONSCIOUSNESS [None]
  - MOBILITY DECREASED [None]
  - MULTIPLE SCLEROSIS [None]
  - ORAL INTAKE REDUCED [None]
  - PAIN [None]
  - PNEUMONIA [None]
  - THERAPEUTIC AGENT TOXICITY [None]
  - TREMOR [None]
  - VOMITING [None]
  - WEIGHT DECREASED [None]
